FAERS Safety Report 10540579 (Version 1)
Quarter: 2014Q4

REPORT INFORMATION
  Report Type: Spontaneous
  Country: NL (occurrence: NL)
  Receive Date: 20141024
  Receipt Date: 20141024
  Transmission Date: 20150529
  Serious: Yes (Other)
  Sender: FDA-Public Use
  Company Number: NL-PFIZER INC-2014289941

PATIENT
  Age: 74 Year
  Sex: Female

DRUGS (1)
  1. TERRA-CORTRIL POLYMYXIN B [Suspect]
     Active Substance: HYDROCORTISONE\OXYTETRACYCLINE HYDROCHLORIDE\POLYMYXIN B SULFATE
     Indication: INNER EAR INFLAMMATION
     Dosage: UNK

REACTIONS (2)
  - Ear discomfort [Recovered/Resolved]
  - Deafness [Recovered/Resolved]
